FAERS Safety Report 8265218-9 (Version None)
Quarter: 2012Q2

REPORT INFORMATION
  Report Type: 
  Country: None (occurrence: None)
  Receive Date: 20120406
  Receipt Date: 20120330
  Transmission Date: 20120825
  Serious: Yes (Hospitalization)
  Sender: FDA-Public Use
  Company Number: AT-ROCHE-1055395

PATIENT
  Age: 42 Year
  Sex: Female
  Weight: 50 kg

DRUGS (1)
  1. AVASTIN [Suspect]
     Indication: OVARIAN CANCER
     Dosage: 11.10-11.20H, 129.7ML/H
     Dates: start: 20120323, end: 20120323

REACTIONS (3)
  - HYPERSENSITIVITY [None]
  - CYANOSIS [None]
  - DYSPNOEA [None]
